FAERS Safety Report 23698122 (Version 3)
Quarter: 2024Q2

REPORT INFORMATION
  Report Type: Report from Study
  Country: GB (occurrence: GB)
  Receive Date: 20240402
  Receipt Date: 20240619
  Transmission Date: 20240716
  Serious: Yes (Hospitalization, Other)
  Sender: FDA-Public Use
  Company Number: GB-SANDOZ-SDZ2024GB030954

PATIENT
  Sex: Male

DRUGS (1)
  1. OMNITROPE [Suspect]
     Active Substance: SOMATROPIN
     Indication: Pituitary gonadotropin hyperfunction
     Dosage: 0.80 MG, QD
     Route: 058

REACTIONS (9)
  - Kidney infection [Unknown]
  - Injury associated with device [Unknown]
  - Crying [Unknown]
  - Injection site pain [Unknown]
  - Headache [Recovered/Resolved]
  - Injection site bruising [Unknown]
  - Wrong technique in product usage process [Unknown]
  - Lack of injection site rotation [Unknown]
  - Product use in unapproved indication [Unknown]
